FAERS Safety Report 17216006 (Version 1)
Quarter: 2019Q4

REPORT INFORMATION
  Report Type: Report from Study
  Country: IT (occurrence: IT)
  Receive Date: 20191230
  Receipt Date: 20191230
  Transmission Date: 20200122
  Serious: Yes (Hospitalization)
  Sender: FDA-Public Use
  Company Number: IT-MYLANLABS-2019M1129317

PATIENT
  Age: 47 Year
  Sex: Male

DRUGS (1)
  1. BRUFEN 800 MG COMPRESSE RIVESTITE A RILASCIO PROLUNGATO [Suspect]
     Active Substance: IBUPROFEN
     Indication: TENDONITIS
     Dosage: 800 MILLIGRAM, QD
     Route: 048

REACTIONS (4)
  - Melaena [Not Recovered/Not Resolved]
  - Erosive duodenitis [Not Recovered/Not Resolved]
  - Gastritis erosive [Not Recovered/Not Resolved]
  - Gastric ulcer [Not Recovered/Not Resolved]

NARRATIVE: CASE EVENT DATE: 20190527
